FAERS Safety Report 9631787 (Version 1)
Quarter: 2013Q4

REPORT INFORMATION
  Report Type: Spontaneous
  Country: GB (occurrence: None)
  Receive Date: 20131016
  Receipt Date: 20131016
  Transmission Date: 20140711
  Serious: Yes (Other)
  Sender: FDA-Public Use
  Company Number: AUR-APL-2013-08465

PATIENT
  Age: 27 Year
  Sex: Female
  Weight: 60.32 kg

DRUGS (6)
  1. CIPROFLOXACIN [Suspect]
     Indication: CYSTITIS
     Dosage: 1000 MG (500 MG,2 IN 1 D),ORAL
     Route: 048
     Dates: start: 20130916, end: 20130917
  2. LACTOBACILLUS ACIDOPHILUS (LACTOBACILLUS ACIDOPHILUS) [Concomitant]
  3. MAGNESIUM (MAGNESIUM) [Concomitant]
  4. NITROFURANTOIN [Concomitant]
  5. TRIMETHOPRIM (TRIMETHOPRIM) [Concomitant]
  6. VITAMIN C [Concomitant]

REACTIONS (14)
  - Anxiety [None]
  - Depression [None]
  - Decreased appetite [None]
  - Joint crepitation [None]
  - Arthralgia [None]
  - Palpitations [None]
  - Panic attack [None]
  - Insomnia [None]
  - Diarrhoea [None]
  - Joint swelling [None]
  - Joint stiffness [None]
  - Abdominal pain upper [None]
  - Hyperhidrosis [None]
  - Tendon pain [None]
